FAERS Safety Report 21286328 (Version 4)
Quarter: 2022Q3

REPORT INFORMATION
  Report Type: Spontaneous
  Country: GT (occurrence: GT)
  Receive Date: 20220902
  Receipt Date: 20220930
  Transmission Date: 20221027
  Serious: No
  Sender: FDA-Public Use
  Company Number: GT-PFIZER INC-PV202200051566

PATIENT
  Age: 38 Year
  Sex: Male

DRUGS (1)
  1. SUTENT [Suspect]
     Active Substance: SUNITINIB MALATE
     Dosage: 1X/DAY, 4 WEEKS AND 2 WEEKS OFF (BEFORE BREAKFAST)
     Dates: start: 202205

REACTIONS (12)
  - Skin exfoliation [Unknown]
  - Pain [Unknown]
  - Hyperkeratosis [Unknown]
  - Erythema [Unknown]
  - Skin irritation [Unknown]
  - Pain in extremity [Unknown]
  - Pharyngeal inflammation [Unknown]
  - Ear disorder [Unknown]
  - Nasal disorder [Unknown]
  - Tinnitus [Unknown]
  - Headache [Unknown]
  - Inflammation [Unknown]
